FAERS Safety Report 10216456 (Version 1)
Quarter: 2014Q2

REPORT INFORMATION
  Report Type: Spontaneous
  Country: GB (occurrence: GB)
  Receive Date: 20140604
  Receipt Date: 20140604
  Transmission Date: 20141212
  Serious: Yes (Other)
  Sender: FDA-Public Use
  Company Number: GB-WATSON-2014-11900

PATIENT
  Age: 54 Year
  Sex: Female

DRUGS (1)
  1. AMLODIPINE (UNKNOWN) [Suspect]
     Indication: HYPERTENSION
     Dosage: 5 MG, DAILY
     Route: 065

REACTIONS (1)
  - Telangiectasia [Recovered/Resolved]
